FAERS Safety Report 12085524 (Version 2)
Quarter: 2016Q1

REPORT INFORMATION
  Report Type: Spontaneous
  Country: PT (occurrence: PT)
  Receive Date: 20160217
  Receipt Date: 20160224
  Transmission Date: 20160526
  Serious: Yes (Hospitalization, Other)
  Sender: FDA-Public Use
  Company Number: PT-PFIZER INC-2016076979

PATIENT
  Age: 44 Year
  Sex: Female

DRUGS (7)
  1. DEPO-MEDROL [Suspect]
     Active Substance: METHYLPREDNISOLONE ACETATE
     Indication: SYSTEMIC LUPUS ERYTHEMATOSUS
     Dosage: 40 MG, 3X/DAY (8/8H), AT A TOTAL OF 3 AMPOULES
     Route: 042
     Dates: start: 20160204, end: 20160205
  2. SOLU-MEDROL [Suspect]
     Active Substance: METHYLPREDNISOLONE SODIUM SUCCINATE
     Indication: SYSTEMIC LUPUS ERYTHEMATOSUS
     Dosage: 40 MG, DAILY
     Route: 042
     Dates: start: 20160205
  3. VALACICLOVIR [Concomitant]
     Active Substance: VALACYCLOVIR HYDROCHLORIDE
     Indication: HERPES VIRUS INFECTION
  4. DEPO-MEDROL [Suspect]
     Active Substance: METHYLPREDNISOLONE ACETATE
     Indication: THROMBOCYTOPENIA
  5. SOLU-MEDROL [Suspect]
     Active Substance: METHYLPREDNISOLONE SODIUM SUCCINATE
     Indication: THROMBOCYTOPENIA
  6. GANCICLOVIR. [Concomitant]
     Active Substance: GANCICLOVIR
     Indication: VIRAL INFECTION
  7. IMMUNOGLOBULIN ANTI-CYTOMEGALOVIRUS [Concomitant]
     Indication: CYTOMEGALOVIRUS INFECTION

REACTIONS (6)
  - Herpes simplex [Unknown]
  - Wrong drug administered [Unknown]
  - Gastrointestinal haemorrhage [Unknown]
  - Incorrect route of drug administration [Unknown]
  - Cytomegalovirus infection [Unknown]
  - Condition aggravated [Unknown]

NARRATIVE: CASE EVENT DATE: 201602
